FAERS Safety Report 6719600-9 (Version None)
Quarter: 2010Q2

REPORT INFORMATION
  Report Type: 
  Country: None (occurrence: None)
  Receive Date: 20100511
  Receipt Date: 20100507
  Transmission Date: 20101027
  Serious: Yes (Death)
  Sender: FDA-Public Use
  Company Number: BE-JNJFOC-20100210587

PATIENT
  Sex: Female

DRUGS (4)
  1. INVEGA [Suspect]
     Indication: PSYCHOTIC DISORDER
     Route: 048
  2. INVEGA [Suspect]
     Indication: AGITATION
     Route: 048
  3. DIPIPERON [Concomitant]
     Indication: DRUG USE FOR UNKNOWN INDICATION
  4. HALDOL [Concomitant]
     Indication: DRUG USE FOR UNKNOWN INDICATION

REACTIONS (6)
  - ABNORMAL WEIGHT GAIN [None]
  - AGITATION [None]
  - CONSTIPATION [None]
  - FAECALOMA [None]
  - SEPTIC SHOCK [None]
  - UMBILICAL HERNIA [None]
